FAERS Safety Report 19275348 (Version 3)
Quarter: 2021Q2

REPORT INFORMATION
  Report Type: Spontaneous
  Country: IT (occurrence: IT)
  Receive Date: 20210519
  Receipt Date: 20210607
  Transmission Date: 20210717
  Serious: Yes (Death)
  Sender: FDA-Public Use
  Company Number: NVSC2021IT103018

PATIENT
  Age: 71 Year
  Sex: Female

DRUGS (6)
  1. EFFENTORA [Concomitant]
     Active Substance: FENTANYL CITRATE
     Indication: PRODUCT USED FOR UNKNOWN INDICATION
     Dosage: 200 MG(WHEN NEEDED, FOR AT LEAST 10 MONTHS)
     Route: 065
  2. LOBIDIUR [Concomitant]
     Active Substance: HYDROCHLOROTHIAZIDE\NEBIVOLOL HYDROCHLORIDE
     Indication: PRODUCT USED FOR UNKNOWN INDICATION
     Dosage: 5 MG (SINCE ALWAYS)
     Route: 065
  3. KISQALI [Suspect]
     Active Substance: RIBOCICLIB
     Indication: BREAST CANCER STAGE IV
     Dosage: 600 MG, QD
     Route: 048
     Dates: start: 20190514, end: 20210420
  4. LETRIX [Concomitant]
     Indication: BREAST CANCER STAGE IV
     Dosage: 2.5 MG
     Route: 065
     Dates: start: 201903
  5. OXYCONTIN [Concomitant]
     Active Substance: OXYCODONE HYDROCHLORIDE
     Indication: PRODUCT USED FOR UNKNOWN INDICATION
     Dosage: 20 MG, QD (1X1, FOR AT LEAST 10 MONTHS)
     Route: 065
  6. LETRIX [Concomitant]
     Dosage: 2 MG, QD
     Route: 048
     Dates: start: 20190514, end: 20210420

REACTIONS (7)
  - Malaise [Unknown]
  - Fatigue [Unknown]
  - Dyspnoea [Unknown]
  - Respiratory rate increased [Unknown]
  - Chest pain [Unknown]
  - Interstitial lung disease [Fatal]
  - Respiratory failure [Fatal]

NARRATIVE: CASE EVENT DATE: 20210420
